FAERS Safety Report 5739040-9 (Version None)
Quarter: 2008Q2

REPORT INFORMATION
  Report Type: 
  Country: None (occurrence: None)
  Receive Date: 20080515
  Receipt Date: 20080515
  Transmission Date: 20081010
  Serious: Yes (Hospitalization)
  Sender: FDA-Public Use
  Company Number: None

PATIENT
  Age: 81 Year
  Sex: Female
  Weight: 76 kg

DRUGS (4)
  1. HEPARIN [Suspect]
     Indication: AORTIC VALVE REPLACEMENT
     Dosage: 23,000 UNITS X 1 IV
     Route: 042
     Dates: start: 20080410
  2. HEPARIN [Suspect]
     Indication: TRICUSPID VALVE REPAIR
     Dosage: 10,000 UNITS  X 1  IV
     Route: 042
     Dates: start: 20080410
  3. HEPARIN [Suspect]
     Dosage: 15,000 UNITS X1 IV
     Route: 042
     Dates: start: 20080410
  4. APROTININ [Concomitant]

REACTIONS (1)
  - DRUG EFFECT DECREASED [None]
